FAERS Safety Report 9782076 (Version 2)
Quarter: 2013Q4

REPORT INFORMATION
  Report Type: Spontaneous
  Country: BR (occurrence: BR)
  Receive Date: 20131226
  Receipt Date: 20131226
  Transmission Date: 20140711
  Serious: Yes (Other)
  Sender: FDA-Public Use
  Company Number: BR-AMGEN-BRASP2012070990

PATIENT
  Age: 70 Year
  Sex: Female
  Weight: 52 kg

DRUGS (1)
  1. ENBREL [Suspect]
     Indication: RHEUMATOID ARTHRITIS
     Dosage: 50 MG (2 INJECTIONS OF 25MG), 1X/WEEKLY
     Route: 058
     Dates: start: 200812

REACTIONS (5)
  - Eye disorder [Unknown]
  - Pain [Unknown]
  - Blood cholesterol increased [Unknown]
  - Dry mouth [Unknown]
  - Dry throat [Unknown]
